FAERS Safety Report 18802302 (Version 2)
Quarter: 2021Q2

REPORT INFORMATION
  Report Type: Spontaneous
  Country: US (occurrence: US)
  Receive Date: 20210128
  Receipt Date: 20210531
  Transmission Date: 20210717
  Serious: Yes (Other)
  Sender: FDA-Public Use
  Company Number: US-GILEAD-2021-0513457

PATIENT
  Sex: Male
  Weight: 63.49 kg

DRUGS (34)
  1. LEXIVA [Concomitant]
     Active Substance: FOSAMPRENAVIR CALCIUM
     Indication: HIV INFECTION
  2. FENOFIBRATE. [Concomitant]
     Active Substance: FENOFIBRATE
     Indication: BLOOD CHOLESTEROL INCREASED
  3. COMBIVIR [Concomitant]
     Active Substance: LAMIVUDINE\ZIDOVUDINE
     Indication: HIV INFECTION
  4. CLONAZEPAM. [Concomitant]
     Active Substance: CLONAZEPAM
  5. GENVOYA [Concomitant]
     Active Substance: COBICISTAT\ELVITEGRAVIR\EMTRICITABINE\TENOFOVIR ALAFENAMIDE FUMARATE
     Indication: HIV INFECTION
  6. KALETRA [Concomitant]
     Active Substance: LOPINAVIR\RITONAVIR
     Indication: HIV INFECTION
  7. SUBOXONE [Concomitant]
     Active Substance: BUPRENORPHINE HYDROCHLORIDE\NALOXONE HYDROCHLORIDE
  8. BUPRENORPHINE/NALOXONE [Concomitant]
     Active Substance: BUPRENORPHINE\NALOXONE
  9. MORPHINE SULFATE. [Concomitant]
     Active Substance: MORPHINE SULFATE
     Indication: PAIN
  10. BIKTARVY [Concomitant]
     Active Substance: BICTEGRAVIR SODIUM\EMTRICITABINE\TENOFOVIR ALAFENAMIDE FUMARATE
     Indication: HIV INFECTION
  11. NORVIR [Concomitant]
     Active Substance: RITONAVIR
     Indication: HIV INFECTION
  12. CREON [Concomitant]
     Active Substance: PANCRELIPASE AMYLASE\PANCRELIPASE LIPASE\PANCRELIPASE PROTEASE
     Indication: GASTROOESOPHAGEAL REFLUX DISEASE
  13. INVEGA [Concomitant]
     Active Substance: PALIPERIDONE
     Indication: SCHIZOPHRENIA
  14. LOVAZA [Concomitant]
     Active Substance: OMEGA-3-ACID ETHYL ESTERS
     Indication: BLOOD CHOLESTEROL
  15. TRIHEXYPHENIDYL [Concomitant]
     Active Substance: TRIHEXYPHENIDYL
  16. TRUVADA [Suspect]
     Active Substance: EMTRICITABINE\TENOFOVIR DISOPROXIL FUMARATE
     Indication: HIV INFECTION
     Dosage: UNK
     Route: 048
     Dates: start: 2012
  17. TRAZODONE [Concomitant]
     Active Substance: TRAZODONE HYDROCHLORIDE
  18. VITAMIN B NOS [Concomitant]
     Active Substance: VITAMIN B
  19. BELSOMRA [Concomitant]
     Active Substance: SUVOREXANT
  20. CHANTIX [Concomitant]
     Active Substance: VARENICLINE TARTRATE
  21. DOXYCYCLINE. [Concomitant]
     Active Substance: DOXYCYCLINE
     Indication: BACTERIAL INFECTION
  22. HYDROCODONE [Concomitant]
     Active Substance: HYDROCODONE
  23. ONDANSETRON [Concomitant]
     Active Substance: ONDANSETRON
     Indication: GASTROOESOPHAGEAL REFLUX DISEASE
  24. STRIBILD [Suspect]
     Active Substance: COBICISTAT\ELVITEGRAVIR\EMTRICITABINE\TENOFOVIR DISOPROXIL FUMARATE
     Indication: HIV INFECTION
     Dosage: UNK
     Route: 048
     Dates: start: 2012
  25. OMEPRAZOLE. [Concomitant]
     Active Substance: OMEPRAZOLE
     Indication: GASTROOESOPHAGEAL REFLUX DISEASE
  26. DOVATO [Concomitant]
     Active Substance: DOLUTEGRAVIR SODIUM\LAMIVUDINE
     Indication: HIV INFECTION
  27. LEVETIRACETAM. [Concomitant]
     Active Substance: LEVETIRACETAM
     Indication: SEIZURE
  28. MECLIZINE HCL [Concomitant]
     Active Substance: MECLIZINE HYDROCHLORIDE
     Indication: NAUSEA
  29. METHOCARBAMOL. [Concomitant]
     Active Substance: METHOCARBAMOL
  30. TRUVADA [Suspect]
     Active Substance: EMTRICITABINE\TENOFOVIR DISOPROXIL FUMARATE
     Dosage: UNK
     Route: 048
     Dates: start: 20110127, end: 201610
  31. STRIBILD [Suspect]
     Active Substance: COBICISTAT\ELVITEGRAVIR\EMTRICITABINE\TENOFOVIR DISOPROXIL FUMARATE
     Dosage: UNK
     Route: 048
     Dates: start: 20161014, end: 20170826
  32. VITAMINS NOS [Concomitant]
     Active Substance: VITAMINS
  33. CVS ASPIRIN [Concomitant]
     Active Substance: ASPIRIN
  34. OXYCODONE [Concomitant]
     Active Substance: OXYCODONE
     Indication: PAIN

REACTIONS (6)
  - Chronic kidney disease [Not Recovered/Not Resolved]
  - Anhedonia [Not Recovered/Not Resolved]
  - Depression [Not Recovered/Not Resolved]
  - Pain [Not Recovered/Not Resolved]
  - Emotional distress [Not Recovered/Not Resolved]
  - Anxiety [Not Recovered/Not Resolved]

NARRATIVE: CASE EVENT DATE: 2013
